FAERS Safety Report 5032562-8 (Version None)
Quarter: 2006Q2

REPORT INFORMATION
  Report Type: 
  Country: None (occurrence: None)
  Receive Date: 20060622
  Receipt Date: 20060614
  Transmission Date: 20061013
  Serious: Yes (Other)
  Sender: FDA-Public Use
  Company Number: JP-AVENTIS-200611863JP

PATIENT
  Age: 0 Year
  Sex: Female
  Weight: 2.17 kg

DRUGS (2)
  1. LASIX [Suspect]
     Route: 064
  2. THIAZIDES [Concomitant]
     Route: 064

REACTIONS (2)
  - DRUG EXPOSURE DURING PREGNANCY [None]
  - SMALL FOR DATES BABY [None]
